FAERS Safety Report 9370773 (Version 2)
Quarter: 2013Q3

REPORT INFORMATION
  Report Type: Spontaneous
  Country: US (occurrence: US)
  Receive Date: 20130626
  Receipt Date: 20130815
  Transmission Date: 20140515
  Serious: Yes (Other)
  Sender: FDA-Public Use
  Company Number: US-FRI-1000046243

PATIENT
  Age: 68 Year
  Sex: Female

DRUGS (1)
  1. BYSTOLIC [Suspect]
     Indication: HYPERTENSION
     Dates: start: 2013, end: 2013

REACTIONS (1)
  - Heart rate decreased [Recovered/Resolved]
